FAERS Safety Report 10183295 (Version 2)
Quarter: 2014Q2

REPORT INFORMATION
  Report Type: Spontaneous
  Country: BE (occurrence: BE)
  Receive Date: 20140520
  Receipt Date: 20140520
  Transmission Date: 20141212
  Serious: Yes (Death, Hospitalization)
  Sender: FDA-Public Use
  Company Number: BE-BAXTER-2014BAX022857

PATIENT
  Sex: Female

DRUGS (2)
  1. EXTRANEAL 7,5%, SOLUTION POUR DIALYSE P?RITON?ALE [Suspect]
     Indication: PERITONEAL DIALYSIS
     Route: 033
  2. PHYSIONEAL 40 GLUCOSE 1,36%, SOLUTION POUR DIALYSE P?RITON?ALE [Suspect]
     Indication: PERITONEAL DIALYSIS
     Route: 033

REACTIONS (6)
  - Asthenia [Fatal]
  - Death [Fatal]
  - Fall [Fatal]
  - Peritonitis bacterial [Fatal]
  - Colitis [Fatal]
  - General physical health deterioration [Unknown]
